FAERS Safety Report 9089493 (Version 3)
Quarter: 2013Q1

REPORT INFORMATION
  Report Type: Spontaneous
  Country: US (occurrence: US)
  Receive Date: 20130201
  Receipt Date: 20130327
  Transmission Date: 20140127
  Serious: Yes (Other)
  Sender: FDA-Public Use
  Company Number: US-PFIZER INC-2013041107

PATIENT
  Age: 48 Year
  Sex: Female
  Weight: 54.42 kg

DRUGS (2)
  1. LYRICA [Suspect]
     Indication: COMPLEX REGIONAL PAIN SYNDROME
     Dosage: 300 MG, 1X/DAY
     Route: 048
     Dates: start: 2008
  2. TRAMADOL [Concomitant]
     Indication: BACK PAIN
     Dosage: UNK

REACTIONS (11)
  - Pain in extremity [Unknown]
  - Intentional drug misuse [Unknown]
  - Withdrawal syndrome [Unknown]
  - Activities of daily living impaired [Unknown]
  - Agitation [Unknown]
  - Anxiety [Unknown]
  - Insomnia [Unknown]
  - Cold sweat [Unknown]
  - Tremor [Unknown]
  - Off label use [Unknown]
  - Therapeutic response unexpected [Unknown]
